FAERS Safety Report 12059833 (Version 1)
Quarter: 2020Q3

REPORT INFORMATION
  Report Type: Other
  Country: ES (occurrence: ES)
  Receive Date: 20160210
  Receipt Date: 20160210
  Transmission Date: 20201105
  Serious: Yes (Other)
  Sender: FDA-Public Use
  Company Number: 2016-000239

PATIENT
  Age: 82 Year
  Sex: Female

DRUGS (8)
  1. PREDNISONE. [Suspect]
     Active Substance: PREDNISONE
  2. GLUCOCORTICOIDS [Suspect]
     Active Substance: UNSPECIFIED INGREDIENT
     Route: 055
  3. ALENDRONIC ACID [Suspect]
     Active Substance: ALENDRONIC ACID
     Route: 048
  4. DIDRONEL [Suspect]
     Active Substance: ETIDRONATE DISODIUM
     Route: 048
  5. IBANDRONIC ACID. [Suspect]
     Active Substance: IBANDRONIC ACID
     Route: 048
  6. ACTONEL [Suspect]
     Active Substance: RISEDRONATE SODIUM
     Indication: POLYMYALGIA RHEUMATICA
     Route: 048
  7. DENOSUMAB [Suspect]
     Active Substance: DENOSUMAB
     Route: 065
  8. OMEPRAZOLE. [Concomitant]
     Active Substance: OMEPRAZOLE

REACTIONS (3)
  - Fracture delayed union [Unknown]
  - Atypical femur fracture [Unknown]
  - Product use issue [Unknown]
